FAERS Safety Report 12553896 (Version 1)
Quarter: 2016Q3

REPORT INFORMATION
  Report Type: Spontaneous
  Country: ES (occurrence: ES)
  Receive Date: 20160713
  Receipt Date: 20160713
  Transmission Date: 20161109
  Serious: Yes (Other)
  Sender: FDA-Public Use
  Company Number: ES-APOTEX-2016AP009689

PATIENT
  Age: 70 Year
  Sex: Female

DRUGS (10)
  1. DIPYRONE [Suspect]
     Active Substance: DIPYRONE
     Indication: PRODUCT USED FOR UNKNOWN INDICATION
     Dosage: UNK, UNKNOWN
     Route: 065
     Dates: start: 1999
  2. ATORVASTATIN [Concomitant]
     Active Substance: ATORVASTATIN
     Indication: PRODUCT USED FOR UNKNOWN INDICATION
     Dosage: UNK, UNKNOWN
     Route: 065
  3. PARACETAMOL APOTEX COMPRIMIDOS [Suspect]
     Active Substance: ACETAMINOPHEN
     Dosage: 0.1 MG/ML
     Dates: start: 201409
  4. DIPYRONE [Suspect]
     Active Substance: DIPYRONE
     Dosage: UNK, UNKNOWN
     Route: 065
     Dates: start: 201409
  5. PARACETAMOL APOTEX COMPRIMIDOS [Suspect]
     Active Substance: ACETAMINOPHEN
     Dosage: CUMULATIVE DOSE OF 300MG (50, 100, AND 150MG AT 90-MINUTE TIME INTERVAL)
     Route: 065
     Dates: start: 201409
  6. LORAZEPAM. [Concomitant]
     Active Substance: LORAZEPAM
     Indication: PRODUCT USED FOR UNKNOWN INDICATION
     Dosage: UNK, UNKNOWN
     Route: 065
  7. PARACETAMOL APOTEX COMPRIMIDOS [Suspect]
     Active Substance: ACETAMINOPHEN
     Indication: PRODUCT USED FOR UNKNOWN INDICATION
     Dosage: UNK, UNKNOWN
     Route: 065
     Dates: start: 1999
  8. RANITIDINE. [Concomitant]
     Active Substance: RANITIDINE
     Indication: PRODUCT USED FOR UNKNOWN INDICATION
     Dosage: UNK, UNKNOWN
     Route: 065
  9. CELECOXIB APOTEX CAPSULAS DURAS EFG [Suspect]
     Active Substance: CELECOXIB
     Indication: PRODUCT USED FOR UNKNOWN INDICATION
     Dosage: UNK
     Route: 065
     Dates: start: 2012
  10. CELECOXIB APOTEX CAPSULAS DURAS EFG [Suspect]
     Active Substance: CELECOXIB
     Dosage: 100 MG, SINGLE
     Route: 065

REACTIONS (1)
  - Drug hypersensitivity [Unknown]

NARRATIVE: CASE EVENT DATE: 2012
